FAERS Safety Report 7180392-3 (Version None)
Quarter: 2010Q4

REPORT INFORMATION
  Report Type: 
  Country: None (occurrence: None)
  Receive Date: 20101221
  Receipt Date: 20101214
  Transmission Date: 20110411
  Serious: Yes (Hospitalization)
  Sender: FDA-Public Use
  Company Number: B0674193A

PATIENT
  Sex: Female
  Weight: 40 kg

DRUGS (8)
  1. TYKERB [Suspect]
     Indication: BREAST CANCER
     Dosage: 1250MG PER DAY
     Route: 048
     Dates: start: 20100417, end: 20100712
  2. XELODA [Suspect]
     Dosage: 1800MG PER DAY
     Route: 048
     Dates: start: 20100417, end: 20100712
  3. PARIET [Concomitant]
     Dosage: 10MG PER DAY
     Route: 048
  4. GASTROM [Concomitant]
     Dosage: 3G PER DAY
     Route: 048
  5. LIPITOR [Concomitant]
     Dosage: 10MG PER DAY
     Route: 048
  6. RIZE [Concomitant]
     Dosage: 10MG PER DAY
     Route: 048
  7. METHYCOBAL [Concomitant]
     Dosage: 1500MG PER DAY
     Route: 048
  8. HYPEN [Concomitant]
     Dosage: 400MG PER DAY
     Route: 048

REACTIONS (2)
  - DERMATITIS [None]
  - PALMAR-PLANTAR ERYTHRODYSAESTHESIA SYNDROME [None]
